FAERS Safety Report 9237956 (Version 4)
Quarter: 2013Q2

REPORT INFORMATION
  Report Type: Spontaneous
  Country: US (occurrence: None)
  Receive Date: 20130405
  Receipt Date: 20130513
  Transmission Date: 20140414
  Serious: Yes (Hospitalization, Other)
  Sender: FDA-Public Use
  Company Number: 2013035178

PATIENT
  Sex: Female
  Weight: 93.44 kg

DRUGS (37)
  1. HIZENTRA [Suspect]
     Indication: HYPOGAMMAGLOBULINAEMIA
     Dosage: 10 G 1X/WEEK, 50 ML IN 2 SITES OVER 1-2 HOURS
     Route: 058
     Dates: start: 20130214, end: 20130214
  2. HIZENTRA [Suspect]
     Indication: IMMUNODEFICIENCY COMMON VARIABLE
     Dosage: 10 G 1X/WEEK, 50 ML IN 2 SITES OVER 1-2 HOURS
     Route: 058
     Dates: start: 20130214, end: 20130214
  3. AMPICILLIN [Suspect]
     Indication: PROPHYLAXIS
  4. CALCIUM + D (CALCIUM D3) [Concomitant]
  5. ADVAIR DISKUS (SERETIDE /01420901/) [Concomitant]
  6. ASPIRIN (ACETYLSALICYLIC ACID) [Concomitant]
  7. MYCOSTATIN (NYSTATIN) [Concomitant]
  8. AMBIEN (ZOLPIDEM TARTRATE) [Concomitant]
  9. NASONEX (MOMETASONE FUROATE) [Concomitant]
  10. BREATHERITE (ALL OTHER THERAPEUTIC PRODUCTS) [Concomitant]
  11. MIRALAX [Concomitant]
  12. ZOFRAN (ONDANSETRON) [Concomitant]
  13. ARMIDEX (ANASTROZOLE) [Concomitant]
  14. SINGULAIR [Concomitant]
  15. ZOCOR (SIMVASTATIN) [Concomitant]
  16. VITAMIN D3 (COLECALCIFEROL) [Concomitant]
  17. FOLIC ACID [Concomitant]
  18. COMBIVENT (BREVA) [Concomitant]
  19. MELATONIN [Concomitant]
  20. AUGMENTIN [Concomitant]
  21. LOPRESSOR (METOPROLOL TARTRATE) [Concomitant]
  22. MAGNESIUM [Concomitant]
  23. LASIX (FUROSEMIDE) [Concomitant]
  24. ALBUTEROL (SALBUTAMOL) [Concomitant]
  25. PROBIOTIC (LACTOBACILLUS ACIDOPHILUS) [Concomitant]
  26. ASPERCREME (TROLAMINE SALICYLATE) [Concomitant]
  27. DIFLUCAN (FLUCONAZOLE) [Concomitant]
  28. FERROUS SULFATE [Concomitant]
  29. VITAMIN B12 (CYANOCOBALAMIN) [Concomitant]
  30. BENADRYL (DIPHENHYDRAMINE HYDROCHLORIDE) [Concomitant]
  31. BACTRIM DS [Concomitant]
  32. DILAUDID (HYDROMORPHONE HYDROCHLORIDE) [Concomitant]
  33. PREDNISONE [Concomitant]
  34. UNISOM (DIPHENHYDRAMINE HYDROCHLORIDE) [Concomitant]
  35. NEXIUM (ESOMEPRAZOLE MAGNESIUM) [Concomitant]
  36. REFRESH (POLYVIDONE) [Concomitant]
  37. VANCOMYCIN (VANCOMYCIN) [Suspect]

REACTIONS (8)
  - Meningitis aseptic [None]
  - Anaphylactic reaction [None]
  - Oropharyngeal pain [None]
  - Pharyngeal oedema [None]
  - Nasopharyngitis [None]
  - Viral infection [None]
  - Wheezing [None]
  - Arthralgia [None]
